FAERS Safety Report 10090713 (Version 1)
Quarter: 2014Q2

REPORT INFORMATION
  Report Type: Spontaneous
  Country: US (occurrence: US)
  Receive Date: 20140421
  Receipt Date: 20140421
  Transmission Date: 20141212
  Serious: No
  Sender: FDA-Public Use
  Company Number: US-GE HEALTHCARE MEDICAL DIAGNOSTICS-VISP-PR-1404S-0186

PATIENT
  Age: 29 Year
  Sex: Female
  Weight: 113.5 kg

DRUGS (2)
  1. VISIPAQUE [Suspect]
     Indication: FALL
     Route: 042
     Dates: start: 20140417, end: 20140417
  2. VISIPAQUE [Suspect]
     Indication: DIAGNOSTIC PROCEDURE

REACTIONS (3)
  - Lip pruritus [Recovered/Resolved]
  - Tongue pruritus [Recovered/Resolved]
  - Throat irritation [Recovered/Resolved]
